FAERS Safety Report 17307450 (Version 1)
Quarter: 2020Q1

REPORT INFORMATION
  Report Type: Spontaneous
  Country: FR (occurrence: FR)
  Receive Date: 20200123
  Receipt Date: 20200123
  Transmission Date: 20200409
  Serious: Yes (Death)
  Sender: FDA-Public Use
  Company Number: FR-ANIPHARMA-2020-FR-000025

PATIENT
  Age: 87 Year
  Sex: Female

DRUGS (7)
  1. FUROSEMIDE. [Suspect]
     Active Substance: FUROSEMIDE
     Dosage: 40 MG QD
     Route: 065
     Dates: end: 20191230
  2. INDAPAMIDE. [Suspect]
     Active Substance: INDAPAMIDE
     Dosage: 1.5 MG QD
     Route: 065
     Dates: end: 20191228
  3. BISOCE [Suspect]
     Active Substance: BISOPROLOL
     Dosage: 2.5 MG QD
     Route: 065
     Dates: end: 20191229
  4. ELIQUIS [Suspect]
     Active Substance: APIXABAN
     Dosage: 5 MG QD
     Route: 065
     Dates: start: 20190930, end: 20191229
  5. CANDESARTAN. [Suspect]
     Active Substance: CANDESARTAN
     Indication: HYPERTENSION
     Dosage: 4 MG QD
     Route: 048
     Dates: end: 20191228
  6. DIFFU K [Suspect]
     Active Substance: POTASSIUM CHLORIDE
     Dosage: 1200 MG QD
     Route: 065
     Dates: end: 20191228
  7. GARDENAL [Suspect]
     Active Substance: PHENOBARBITAL
     Dosage: 250 MG QD
     Route: 065
     Dates: end: 20191229

REACTIONS (3)
  - Coma [Unknown]
  - Respiratory failure [Fatal]
  - Overdose [Fatal]

NARRATIVE: CASE EVENT DATE: 20191228
